FAERS Safety Report 19983954 (Version 1)
Quarter: 2021Q4

REPORT INFORMATION
  Report Type: Spontaneous
  Country: US (occurrence: US)
  Receive Date: 20211021
  Receipt Date: 20211021
  Transmission Date: 20220303
  Serious: No
  Sender: FDA-Public Use
  Company Number: US-GE HEALTHCARE LIFE SCIENCES-2021CSU004159

PATIENT
  Age: 90 Year
  Sex: Female
  Weight: 56.24 kg

DRUGS (2)
  1. VISIPAQUE [Suspect]
     Active Substance: IODIXANOL
     Indication: Computerised tomogram thorax
     Dosage: 50 ML, SINGLE
     Route: 042
     Dates: start: 20210729, end: 20210729
  2. VISIPAQUE [Suspect]
     Active Substance: IODIXANOL
     Indication: Dyspnoea

REACTIONS (1)
  - Sneezing [Recovered/Resolved]

NARRATIVE: CASE EVENT DATE: 20210729
